FAERS Safety Report 8102862-3 (Version None)
Quarter: 2012Q1

REPORT INFORMATION
  Report Type: 
  Country: None (occurrence: None)
  Receive Date: 20120201
  Receipt Date: 20120123
  Transmission Date: 20120608
  Serious: Yes (Other)
  Sender: FDA-Public Use
  Company Number: US-PURDUE-USA-2012-0081320

PATIENT
  Sex: Male
  Weight: 87.982 kg

DRUGS (5)
  1. OXYCONTIN [Suspect]
     Indication: BREAKTHROUGH PAIN
     Dosage: 20 MG, SEE TEXT
     Dates: start: 20120118, end: 20120119
  2. OXYCONTIN [Suspect]
     Indication: NECK PAIN
     Dosage: 80 MG, SEE TEXT
     Route: 048
  3. OXYCONTIN [Suspect]
     Indication: BACK PAIN
     Dosage: 30 MG, SEE TEXT
     Route: 048
  4. OXYCONTIN [Suspect]
     Indication: DRUG WITHDRAWAL SYNDROME
  5. OPANA [Suspect]

REACTIONS (13)
  - FEELING HOT [None]
  - TINNITUS [None]
  - MUSCLE TWITCHING [None]
  - INSOMNIA [None]
  - CONVULSION [None]
  - PAIN [None]
  - DEHYDRATION [None]
  - WEIGHT DECREASED [None]
  - THERAPY REGIMEN CHANGED [None]
  - REGURGITATION [None]
  - DRUG WITHDRAWAL SYNDROME [None]
  - TREMOR [None]
  - VOMITING [None]
